FAERS Safety Report 6528581-2 (Version None)
Quarter: 2010Q1

REPORT INFORMATION
  Report Type: 
  Country: None (occurrence: None)
  Receive Date: 20100105
  Receipt Date: 20100105
  Transmission Date: 20100710
  Serious: No
  Sender: FDA-Public Use
  Company Number: None

PATIENT

DRUGS (1)
  1. EFFEXOR XR [Suspect]
     Indication: PANIC ATTACK
     Dates: start: 20060301, end: 20060930

REACTIONS (4)
  - EMOTIONAL DISORDER [None]
  - LEARNING DISORDER [None]
  - MATERNAL DRUGS AFFECTING FOETUS [None]
  - SPEECH DISORDER [None]
